FAERS Safety Report 15786751 (Version 1)
Quarter: 2018Q4

REPORT INFORMATION
  Report Type: Spontaneous
  Country: US (occurrence: US)
  Receive Date: 20181212
  Receipt Date: 20181212
  Transmission Date: 20190205
  Serious: Yes (Hospitalization)
  Sender: FDA-Public Use
  Company Number: None

PATIENT
  Age: 12 Year
  Sex: Female

DRUGS (10)
  1. CYCLOPHOSHAMIDE (26271) [Suspect]
     Active Substance: CYCLOPHOSPHAMIDE
     Dates: end: 20180123
  2. DEXAMETHASONE. [Suspect]
     Active Substance: DEXAMETHASONE
     Dates: end: 20180115
  3. PEG-L-ASPARAGINASE [Suspect]
     Active Substance: PEGASPARGASE
     Dates: end: 20181206
  4. THIOGUANINE [Suspect]
     Active Substance: THIOGUANINE
     Dates: end: 20180205
  5. CYTARABINE. [Suspect]
     Active Substance: CYTARABINE
     Dates: end: 20180202
  6. MERCAPTOPURINE. [Suspect]
     Active Substance: MERCAPTOPURINE
     Dates: end: 20181112
  7. METHOTREXATE. [Suspect]
     Active Substance: METHOTREXATE
     Dates: start: 20181106
  8. DAUNORUBICIN [Suspect]
     Active Substance: DAUNORUBICIN
     Dates: end: 20170721
  9. DOXORUBICIN [Suspect]
     Active Substance: DOXORUBICIN
     Dates: end: 20180109
  10. VINCRISTINE SULFATE. [Suspect]
     Active Substance: VINCRISTINE SULFATE
     Dates: end: 20181113

REACTIONS (6)
  - Neutropenia [None]
  - Thrombocytopenia [None]
  - Haemoglobin decreased [None]
  - Packed red blood cell transfusion [None]
  - Pyrexia [None]
  - Clostridium test positive [None]

NARRATIVE: CASE EVENT DATE: 20181120
